FAERS Safety Report 7199975-X (Version None)
Quarter: 2010Q4

REPORT INFORMATION
  Report Type: 
  Country: None (occurrence: None)
  Receive Date: 20101228
  Receipt Date: 20101220
  Transmission Date: 20110411
  Serious: Yes (Hospitalization, Other)
  Sender: FDA-Public Use
  Company Number: US-PFIZER INC-2010034434

PATIENT
  Sex: Male
  Weight: 81 kg

DRUGS (7)
  1. DILANTIN-125 [Suspect]
     Indication: CONVULSION
     Dosage: 300 MG, 1X/DAY
  2. DILANTIN [Suspect]
     Indication: CONVULSION
     Dosage: 100 MG, 3X/DAY
     Route: 048
     Dates: start: 20090901, end: 20090904
  3. DILANTIN [Suspect]
     Dosage: UNK
     Route: 048
     Dates: start: 20090905, end: 20091219
  4. DILANTIN [Suspect]
     Dosage: UNK
     Route: 042
  5. METFORMIN HYDROCHLORIDE/SITAGLIPTIN [Concomitant]
     Dosage: 500/50 MG, TWICE DAILY
     Route: 048
  6. SIMVASTATIN [Concomitant]
     Dosage: 40 MG, DAILY
     Route: 048
  7. PANTOPRAZOLE [Concomitant]
     Dosage: 40 MG, UNK

REACTIONS (1)
  - STEVENS-JOHNSON SYNDROME [None]
